FAERS Safety Report 24596092 (Version 1)
Quarter: 2024Q4

REPORT INFORMATION
  Report Type: Spontaneous
  Country: US (occurrence: US)
  Receive Date: 20241110
  Receipt Date: 20241110
  Transmission Date: 20250115
  Serious: Yes (Hospitalization, Other)
  Sender: AUROBINDO
  Company Number: US-AUROBINDO-AUR-APL-2024-054098

PATIENT
  Age: 49 Year
  Sex: Male

DRUGS (4)
  1. DEXAMETHASONE [Suspect]
     Active Substance: DEXAMETHASONE
     Indication: Tachypnoea
     Dosage: 10 MILLIGRAM
     Route: 042
  2. DEXAMETHASONE [Suspect]
     Active Substance: DEXAMETHASONE
     Indication: Dysphonia
  3. RACEPINEPHRINE [Suspect]
     Active Substance: RACEPINEPHRINE
     Indication: Dysphonia
     Dosage: 0.5 MILLILITER
     Route: 065
  4. RACEPINEPHRINE [Suspect]
     Active Substance: RACEPINEPHRINE
     Indication: Tachypnoea

REACTIONS (1)
  - Drug ineffective [Unknown]
